FAERS Safety Report 5213837-6 (Version None)
Quarter: 2007Q1

REPORT INFORMATION
  Report Type: 
  Country: None (occurrence: None)
  Receive Date: 20070117
  Receipt Date: 20070104
  Transmission Date: 20070707
  Serious: No
  Sender: FDA-Public Use
  Company Number: TPA2006A01986

PATIENT
  Age: 46 Year
  Sex: Male
  Weight: 104.3273 kg

DRUGS (8)
  1. ROZEREM [Suspect]
     Indication: INSOMNIA
     Dosage: PER ORAL; 8 MG, QHS, PER ORAL; 16 MG, QHS, PER ORAL
     Route: 048
     Dates: start: 20061031
  2. ROZEREM [Suspect]
     Indication: INSOMNIA
     Dosage: PER ORAL; 8 MG, QHS, PER ORAL; 16 MG, QHS, PER ORAL
     Route: 048
     Dates: start: 20061101
  3. ROZEREM [Suspect]
     Indication: INSOMNIA
     Dosage: PER ORAL; 8 MG, QHS, PER ORAL; 16 MG, QHS, PER ORAL
     Route: 048
     Dates: start: 20061102
  4. BENADRYL (SODIUM CITRATE, MENTHOL, DIPHENHYDRAMINE HYDROCHLORIDE, AMMO [Suspect]
     Indication: SLEEP DISORDER
     Dosage: PER ORAL
     Route: 048
  5. GLUCOPHAGE [Concomitant]
  6. LISINOPRIL [Concomitant]
  7. ZOCOR [Concomitant]
  8. AMBIEN CR (ZOLPIDEM TARTRATE) [Concomitant]

REACTIONS (2)
  - DRUG INEFFECTIVE [None]
  - SOMNOLENCE [None]
